FAERS Safety Report 5828505-7 (Version None)
Quarter: 2008Q3

REPORT INFORMATION
  Report Type: 
  Country: None (occurrence: None)
  Receive Date: 20080729
  Receipt Date: 20080729
  Transmission Date: 20090109
  Serious: Yes (Other)
  Sender: FDA-Public Use
  Company Number: None

PATIENT
  Age: 21 Year
  Sex: Female
  Weight: 68.0396 kg

DRUGS (1)
  1. YAZ [Suspect]

REACTIONS (17)
  - AFFECTIVE DISORDER [None]
  - ANAEMIA [None]
  - ASTHENIA [None]
  - BIOPSY CERVIX ABNORMAL [None]
  - CERVIX DISORDER [None]
  - COUGH [None]
  - FATIGUE [None]
  - HEADACHE [None]
  - IMPAIRED WORK ABILITY [None]
  - MALAISE [None]
  - OCULAR ICTERUS [None]
  - OROPHARYNGEAL PAIN [None]
  - POISONING [None]
  - PRECANCEROUS CELLS PRESENT [None]
  - RESPIRATORY DISORDER [None]
  - SMEAR CERVIX ABNORMAL [None]
  - YELLOW SKIN [None]
